FAERS Safety Report 7902347-0 (Version None)
Quarter: 2011Q4

REPORT INFORMATION
  Report Type: 
  Country: None (occurrence: None)
  Receive Date: 20111108
  Receipt Date: 20111031
  Transmission Date: 20120403
  Serious: Yes (Other)
  Sender: FDA-Public Use
  Company Number: US-ASTRAZENECA-2011SE65879

PATIENT
  Age: 40 Year
  Sex: Female

DRUGS (2)
  1. SYMBICORT [Suspect]
     Route: 055
  2. SEROQUEL XR [Suspect]
     Indication: DEPRESSION
     Route: 048

REACTIONS (5)
  - LIGAMENT RUPTURE [None]
  - FALL [None]
  - THROMBOSIS [None]
  - LOWER LIMB FRACTURE [None]
  - ANKLE FRACTURE [None]
